FAERS Safety Report 9528944 (Version 3)
Quarter: 2015Q1

REPORT INFORMATION
  Report Type: Spontaneous
  Country: US (occurrence: US)
  Receive Date: 20130917
  Receipt Date: 20150213
  Transmission Date: 20150721
  Serious: Yes (Other)
  Sender: FDA-Public Use
  Company Number: US-ELI_LILLY_AND_COMPANY-US201309002622

PATIENT
  Age: 50 Year
  Sex: Female

DRUGS (5)
  1. ZYPREXA [Suspect]
     Active Substance: OLANZAPINE
     Indication: POST-TRAUMATIC STRESS DISORDER
     Dosage: 25 MG, QD
     Dates: start: 20090215, end: 201206
  2. ZYPREXA [Suspect]
     Active Substance: OLANZAPINE
     Indication: BIPOLAR DISORDER
     Dosage: 10 MG, QD
  3. ZYPREXA [Suspect]
     Active Substance: OLANZAPINE
     Indication: SCHIZOAFFECTIVE DISORDER
     Dosage: 5 MG, QD
     Dates: start: 20081107, end: 20120709
  4. PROZAC [Concomitant]
     Active Substance: FLUOXETINE HYDROCHLORIDE
     Indication: PRODUCT USED FOR UNKNOWN INDICATION
     Dosage: 20MG, TID
     Dates: start: 20081107
  5. VALIUM [Concomitant]
     Active Substance: DIAZEPAM
     Dosage: UNK, UNKNOWN
     Route: 065

REACTIONS (7)
  - Hyperglycaemia [Unknown]
  - Obesity [Unknown]
  - Blood triglycerides increased [Unknown]
  - Hyperlipidaemia [Unknown]
  - Weight increased [Unknown]
  - Prescribed overdose [Unknown]
  - Type 2 diabetes mellitus [Unknown]

NARRATIVE: CASE EVENT DATE: 2008
